FAERS Safety Report 13721787 (Version 1)
Quarter: 2017Q3

REPORT INFORMATION
  Report Type: Spontaneous
  Country: AT (occurrence: AT)
  Receive Date: 20170706
  Receipt Date: 20170706
  Transmission Date: 20171127
  Serious: Yes (Hospitalization, Other)
  Sender: FDA-Public Use
  Company Number: AT-JNJFOC-20170700959

PATIENT
  Age: 75 Year
  Sex: Male

DRUGS (11)
  1. RISPERDAL [Suspect]
     Active Substance: RISPERIDONE
     Indication: DELIRIUM
     Route: 048
     Dates: start: 20170524, end: 20170524
  2. TEMESTA [Concomitant]
     Active Substance: LORAZEPAM
     Route: 065
     Dates: start: 20170520, end: 20170521
  3. RISPERDAL [Suspect]
     Active Substance: RISPERIDONE
     Indication: DELIRIUM
     Route: 048
     Dates: start: 20170523, end: 20170523
  4. SORTIS [Concomitant]
     Active Substance: ATORVASTATIN
     Dosage: INITIATED SINCE YEARS
     Route: 065
  5. TEBOFORTAN [Concomitant]
     Active Substance: GINKGO
     Dosage: INITIATED SINCE MONTHS
     Route: 065
  6. KEFZOL [Concomitant]
     Active Substance: CEFAZOLIN SODIUM
     Indication: URINARY TRACT INFECTION
     Route: 042
     Dates: start: 20170518, end: 20170530
  7. LEVONEX [Concomitant]
     Route: 065
     Dates: start: 20170518
  8. LISINOPRIL. [Concomitant]
     Active Substance: LISINOPRIL
     Dosage: INITIATED SINCE YEARS
     Route: 065
  9. RISPERDAL [Suspect]
     Active Substance: RISPERIDONE
     Indication: DELIRIUM
     Dosage: DOSE REDUCED TO 1 MG AND THEN STOPPED
     Route: 048
     Dates: start: 20170528
  10. RISPERDAL [Suspect]
     Active Substance: RISPERIDONE
     Indication: DELIRIUM
     Route: 048
     Dates: start: 20170520, end: 20170523
  11. LEGALON [Concomitant]
     Active Substance: MILK THISTLE
     Dosage: INITIATED SINCE MONTHS
     Route: 065

REACTIONS (5)
  - Leukoencephalopathy [Unknown]
  - Dysphagia [Recovered/Resolved]
  - Confusional state [Unknown]
  - Restlessness [Unknown]
  - Dysarthria [Unknown]

NARRATIVE: CASE EVENT DATE: 20170521
